FAERS Safety Report 6771600-9 (Version None)
Quarter: 2010Q2

REPORT INFORMATION
  Report Type: 
  Country: None (occurrence: None)
  Receive Date: 20100616
  Receipt Date: 20100607
  Transmission Date: 20101027
  Serious: Yes (Hospitalization)
  Sender: FDA-Public Use
  Company Number: JP-ROCHE-709055

PATIENT
  Sex: Female

DRUGS (3)
  1. ANEXATE [Suspect]
     Indication: DRUG USE FOR UNKNOWN INDICATION
     Dosage: ROUTE REPORTED AS: IV NOS
     Route: 042
     Dates: start: 20070724
  2. DORMICUM (INJ) [Concomitant]
     Dates: start: 20070724
  3. BUSCOPAN [Concomitant]
     Dosage: GENERIC CONTENT WAS REPORTED AS HYOSCINE BUTYLBROMIDE
     Dates: start: 20070724

REACTIONS (1)
  - AGRANULOCYTOSIS [None]
